FAERS Safety Report 18546487 (Version 1)
Quarter: 2020Q4

REPORT INFORMATION
  Report Type: Spontaneous
  Country: US (occurrence: US)
  Receive Date: 20201125
  Receipt Date: 20201125
  Transmission Date: 20210114
  Serious: No
  Sender: FDA-Public Use
  Company Number: US-PFIZER INC-2020461166

PATIENT
  Age: 65 Year
  Sex: Male

DRUGS (2)
  1. SIROLIMUS. [Suspect]
     Active Substance: SIROLIMUS
     Dosage: 1.5 MG, DAILY(1 TAB PO Q DAY - WITH 1MG TABLET - TOTAL DOSE, 1.5MG DAILY)
     Route: 048
  2. SIROLIMUS. [Suspect]
     Active Substance: SIROLIMUS
     Dosage: 1 MG

REACTIONS (1)
  - Laboratory test abnormal [Unknown]
